FAERS Safety Report 17942243 (Version 4)
Quarter: 2022Q3

REPORT INFORMATION
  Report Type: Report from Study
  Country: US (occurrence: US)
  Receive Date: 20200624
  Receipt Date: 20220628
  Transmission Date: 20221027
  Serious: No
  Sender: FDA-Public Use
  Company Number: None

PATIENT
  Sex: Female

DRUGS (3)
  1. KISQALI [Suspect]
     Active Substance: RIBOCICLIB
     Indication: Breast cancer metastatic
     Dosage: UNK
     Route: 048
  2. KISQALI [Suspect]
     Active Substance: RIBOCICLIB
     Dosage: 600 MG (3 WEEKS ON AND ONE WEEK OFF)
     Route: 048
     Dates: start: 2019
  3. FASLODEX [Concomitant]
     Active Substance: FULVESTRANT
     Indication: Product used for unknown indication
     Dosage: UNK (EVERY 28 DAYS)
     Route: 065

REACTIONS (6)
  - White blood cell count decreased [Unknown]
  - Rash [Unknown]
  - Nausea [Recovered/Resolved with Sequelae]
  - Diarrhoea [Unknown]
  - Constipation [Unknown]
  - Labelled drug-food interaction medication error [Unknown]
